FAERS Safety Report 5428811-4 (Version None)
Quarter: 2007Q3

REPORT INFORMATION
  Report Type: 
  Country: None (occurrence: None)
  Receive Date: 20070829
  Receipt Date: 20061011
  Transmission Date: 20080115
  Serious: No
  Sender: FDA-Public Use
  Company Number: A0623589A

PATIENT

DRUGS (1)
  1. ZOVIRAX [Suspect]
     Indication: GENITAL HERPES
     Route: 061

REACTIONS (1)
  - THERMAL BURN [None]
